FAERS Safety Report 13652459 (Version 4)
Quarter: 2017Q4

REPORT INFORMATION
  Report Type: Report from Study
  Country: US (occurrence: US)
  Receive Date: 20170614
  Receipt Date: 20171005
  Transmission Date: 20180320
  Serious: Yes (Hospitalization, Other)
  Sender: FDA-Public Use
  Company Number: US-ACTELION-A-US2015-122511

PATIENT
  Age: 87 Year
  Sex: Female
  Weight: 68.27 kg

DRUGS (8)
  1. ADCIRCA [Concomitant]
     Active Substance: TADALAFIL
  2. GABAPENTIN. [Concomitant]
     Active Substance: GABAPENTIN
  3. OXYGEN. [Concomitant]
     Active Substance: OXYGEN
  4. VELETRI [Concomitant]
     Active Substance: EPOPROSTENOL
  5. TRACLEER [Suspect]
     Active Substance: BOSENTAN
     Dosage: 125 MG, BID
     Route: 048
  6. TRACLEER [Suspect]
     Active Substance: BOSENTAN
     Indication: PULMONARY ARTERIAL HYPERTENSION
     Dosage: 125 MG, BID
     Route: 048
     Dates: start: 20080114
  7. ASPERCREME NOS [Concomitant]
     Active Substance: MENTHOL\TROLAMINE SALICYLATE
  8. TYVASO [Concomitant]
     Active Substance: TREPROSTINIL
     Dosage: UNK
     Dates: start: 20170221

REACTIONS (17)
  - Arthralgia [Unknown]
  - Hypoacusis [Unknown]
  - Walking aid user [Unknown]
  - Cough [Unknown]
  - Throat irritation [Unknown]
  - Wound [Unknown]
  - Burning sensation [Unknown]
  - Pain [Unknown]
  - Amnesia [Unknown]
  - Hip arthroplasty [Unknown]
  - Echocardiogram abnormal [Unknown]
  - Urinary tract infection [Unknown]
  - Memory impairment [Unknown]
  - Oedema peripheral [Unknown]
  - Neuropathy peripheral [Unknown]
  - Balance disorder [Unknown]
  - Fatigue [Unknown]

NARRATIVE: CASE EVENT DATE: 2016
